FAERS Safety Report 5037498-4 (Version None)
Quarter: 2006Q2

REPORT INFORMATION
  Report Type: 
  Country: None (occurrence: None)
  Receive Date: 20060609
  Receipt Date: 20060131
  Transmission Date: 20061013
  Serious: Yes (Hospitalization)
  Sender: FDA-Public Use
  Company Number: 031

PATIENT
  Sex: Male
  Weight: 65.7716 kg

DRUGS (4)
  1. FAZACLO ODT [Suspect]
     Indication: SCHIZOPHRENIA
     Dosage: 800 MG PO DAILY
     Route: 048
     Dates: start: 20051123, end: 20060129
  2. DEPAKOTE [Concomitant]
  3. TOPAMAX [Concomitant]
  4. GLUCOPHAGE [Concomitant]

REACTIONS (1)
  - CONVULSION [None]
